FAERS Safety Report 25750561 (Version 1)
Quarter: 2025Q3

REPORT INFORMATION
  Report Type: Spontaneous
  Country: US (occurrence: None)
  Receive Date: 20250829
  Receipt Date: 20250829
  Transmission Date: 20251020
  Serious: Yes (Other)
  Sender: FDA-CTU
  Company Number: None

PATIENT
  Age: 48 Year
  Sex: Female
  Weight: 82.35 kg

DRUGS (1)
  1. WEGOVY [Suspect]
     Active Substance: SEMAGLUTIDE
     Dates: start: 20250821

REACTIONS (5)
  - Dermatitis allergic [None]
  - Burning sensation [None]
  - Pain [None]
  - Insomnia [None]
  - Discomfort [None]

NARRATIVE: CASE EVENT DATE: 20250821
